FAERS Safety Report 24632222 (Version 2)
Quarter: 2024Q4

REPORT INFORMATION
  Report Type: Spontaneous
  Country: CZ (occurrence: CZ)
  Receive Date: 20241118
  Receipt Date: 20241125
  Transmission Date: 20250115
  Serious: No
  Sender: DAIICHI
  Company Number: CZ-ROCHE-10000122414

PATIENT
  Age: 66 Year
  Sex: Male

DRUGS (1)
  1. TRASTUZUMAB DERUXTECAN [Suspect]
     Active Substance: TRASTUZUMAB DERUXTECAN
     Indication: Gallbladder cancer
     Dosage: UNK
     Route: 065

REACTIONS (2)
  - Off label use [Unknown]
  - No adverse event [Unknown]
